FAERS Safety Report 8405187-1 (Version None)
Quarter: 2012Q2

REPORT INFORMATION
  Report Type: 
  Country: None (occurrence: None)
  Receive Date: 20120603
  Receipt Date: 20120524
  Transmission Date: 20120825
  Serious: Yes (Other)
  Sender: FDA-Public Use
  Company Number: JP-VERTEX PHARMACEUTICALS INC.-AE-2012-004360

PATIENT
  Age: 65 Year
  Sex: Female

DRUGS (12)
  1. TELAVIC (TELAPREVIR) [Suspect]
     Indication: HEPATITIS C
     Route: 048
     Dates: start: 20120315, end: 20120321
  2. PEG-INTRON [Concomitant]
     Indication: HEPATITIS C
     Route: 058
     Dates: start: 20120315, end: 20120315
  3. PEG-INTRON [Concomitant]
     Route: 058
     Dates: start: 20120329, end: 20120329
  4. PRIMPERAN TAB [Concomitant]
     Route: 048
     Dates: start: 20120319
  5. REBETOL [Concomitant]
     Indication: HEPATITIS C
     Route: 048
     Dates: start: 20120315, end: 20120321
  6. REBETOL [Concomitant]
     Route: 048
     Dates: start: 20120329, end: 20120424
  7. REBETOL [Concomitant]
     Route: 048
     Dates: start: 20120425
  8. URSO 250 [Concomitant]
     Route: 048
  9. TELAVIC (TELAPREVIR) [Suspect]
     Route: 048
     Dates: start: 20120329
  10. LANSOPRAZOLE [Concomitant]
     Route: 048
     Dates: start: 20120319
  11. PEG-INTRON [Concomitant]
     Route: 058
     Dates: start: 20120405
  12. PEG-INTRON [Concomitant]
     Route: 058
     Dates: end: 20120516

REACTIONS (3)
  - WHITE BLOOD CELL COUNT DECREASED [None]
  - NEUTROPHIL COUNT DECREASED [None]
  - PLATELET COUNT DECREASED [None]
